FAERS Safety Report 6448169-1 (Version None)
Quarter: 2009Q4

REPORT INFORMATION
  Report Type: 
  Country: None (occurrence: None)
  Receive Date: 20091120
  Receipt Date: 20091113
  Transmission Date: 20100525
  Serious: Yes (Hospitalization)
  Sender: FDA-Public Use
  Company Number: FR-KINGPHARMUSA00001-K200901430

PATIENT
  Age: 48 Year
  Sex: Male

DRUGS (13)
  1. ALTACE [Suspect]
     Dosage: 10 MG, QD
     Route: 048
     Dates: start: 20090827
  2. SECTRAL [Suspect]
     Dosage: 100 MG, QD
     Route: 048
     Dates: start: 20090827
  3. LASILIX [Suspect]
     Dosage: 40 MG, BID
     Route: 048
     Dates: start: 20090827, end: 20090912
  4. CALCIPARINE [Suspect]
     Dosage: UNK
     Route: 058
     Dates: start: 20090821, end: 20090903
  5. BACTRIM [Suspect]
     Dosage: 5 MG, QOD
     Route: 048
     Dates: start: 20090827, end: 20090918
  6. DAFALGAN [Suspect]
     Dosage: UNK
     Route: 048
     Dates: start: 20090907, end: 20090921
  7. LOXEN [Suspect]
     Dosage: 50 MG, BID
     Route: 048
     Dates: start: 20090827, end: 20090907
  8. AMLOR [Suspect]
     Dosage: 5 MG, QD
     Route: 048
     Dates: start: 20090907
  9. COZAAR [Suspect]
     Dosage: 50 MG, QD
     Route: 048
     Dates: start: 20090907
  10. MOPRAL [Suspect]
     Dosage: 20 MG, QD
     Route: 048
     Dates: start: 20090827
  11. EUPRESSYL [Suspect]
     Dosage: 30 MG, BID
     Route: 048
     Dates: start: 20090827
  12. CALCIDIA [Suspect]
     Dosage: UNK
     Route: 048
     Dates: start: 20090827
  13. LEXOMIL [Concomitant]

REACTIONS (5)
  - ANXIETY [None]
  - DEPRESSION [None]
  - EOSINOPHILIA [None]
  - PYREXIA [None]
  - TOOTH INFECTION [None]
